FAERS Safety Report 25087789 (Version 1)
Quarter: 2025Q1

REPORT INFORMATION
  Report Type: Spontaneous
  Country: NL (occurrence: NL)
  Receive Date: 20250318
  Receipt Date: 20250318
  Transmission Date: 20250409
  Serious: Yes (Life-Threatening, Hospitalization)
  Sender: TEVA
  Company Number: None

PATIENT
  Age: 51 Year
  Sex: Female
  Weight: 87.6 kg

DRUGS (1)
  1. CAPECITABINE [Suspect]
     Active Substance: CAPECITABINE
     Indication: Breast cancer
     Dosage: 2 X PER DAY 4 PIECES; TABLET FO / BRAND NAME NOT SPECIFIED
     Route: 048
     Dates: start: 20250106

REACTIONS (1)
  - Cerebral infarction [Recovered/Resolved]
